FAERS Safety Report 22336037 (Version 2)
Quarter: 2023Q2

REPORT INFORMATION
  Report Type: Spontaneous
  Country: US (occurrence: US)
  Receive Date: 20230518
  Receipt Date: 20230627
  Transmission Date: 20230722
  Serious: No
  Sender: FDA-Public Use
  Company Number: US-AMGEN-USASP2023081078

PATIENT
  Age: 77 Year
  Sex: Female

DRUGS (2)
  1. NEULASTA [Suspect]
     Active Substance: PEGFILGRASTIM
     Indication: Colorectal cancer metastatic
     Dosage: 6 MILLIGRAM, (6 MG/0.6 ML) 1 SYRINGE 2X/MONTH AFTER DISCONNECTION FROM CHEMOTHERAPY
     Route: 065
     Dates: start: 202108
  2. NEULASTA [Suspect]
     Active Substance: PEGFILGRASTIM
     Dosage: 6 MILLIGRAM, (6 MG/0.6 ML) 1 SYRINGE 2X/MONTH AFTER DISCONNECTION FROM CHEMOTHERAPY
     Route: 065
     Dates: start: 202108

REACTIONS (1)
  - Device issue [Unknown]

NARRATIVE: CASE EVENT DATE: 20230510
